FAERS Safety Report 9342184 (Version 2)
Quarter: 2014Q1

REPORT INFORMATION
  Report Type: Spontaneous
  Country: GB (occurrence: GB)
  Receive Date: 20130611
  Receipt Date: 20140122
  Transmission Date: 20141002
  Serious: Yes (Life-Threatening, Hospitalization)
  Sender: FDA-Public Use
  Company Number: GB-SANOFI-AVENTIS-2013SA055504

PATIENT
  Age: 72 Year
  Sex: Male

DRUGS (8)
  1. CLOPIDOGREL BISULFATE [Suspect]
     Indication: PROPHYLAXIS
     Route: 048
  2. ACETYLSALICYLIC ACID [Suspect]
     Indication: PROPHYLAXIS
     Dosage: 75 MG, QD
     Route: 048
     Dates: start: 201206, end: 20120717
  3. ACETYLSALICYLIC ACID [Suspect]
     Indication: PROPHYLAXIS
     Dosage: 75 MG, QD
     Route: 048
  4. ATORVASTATIN [Concomitant]
  5. BISOPROLOL [Concomitant]
  6. FUROSEMIDE [Concomitant]
  7. PERINDOPRIL [Concomitant]
  8. GLYCERYL TRINITRATE [Concomitant]

REACTIONS (1)
  - Iron deficiency anaemia [Unknown]
